FAERS Safety Report 10970036 (Version 1)
Quarter: 2015Q1

REPORT INFORMATION
  Report Type: Spontaneous
  Country: FR (occurrence: FR)
  Receive Date: 20150331
  Receipt Date: 20150331
  Transmission Date: 20150721
  Serious: Yes (Death)
  Sender: FDA-Public Use
  Company Number: FR-SA-2015SA039639

PATIENT
  Age: 70 Year
  Sex: Male

DRUGS (11)
  1. OFLOXACIN. [Suspect]
     Active Substance: OFLOXACIN
     Route: 048
     Dates: start: 201501, end: 201502
  2. PREVISCAN [Concomitant]
     Active Substance: FLUINDIONE
     Indication: ATRIAL FIBRILLATION
  3. UROREC [Concomitant]
     Active Substance: SILODOSIN
  4. LASILIX [Suspect]
     Active Substance: FUROSEMIDE
     Dosage: DIVISIBLE TABLET
     Route: 048
  5. PRAVASTATIN [Concomitant]
     Active Substance: PRAVASTATIN\PRAVASTATIN SODIUM
  6. CORDARONE [Suspect]
     Active Substance: AMIODARONE HYDROCHLORIDE
     Dosage: 2 AROP DAY EXCEPT WEEKEND
     Route: 048
     Dates: start: 2013
  7. COVERAM [Concomitant]
     Active Substance: AMLODIPINE\PERINDOPRIL
  8. BETAHISTINE [Concomitant]
     Active Substance: BETAHISTINE
  9. INNOVAIR [Suspect]
     Active Substance: BECLOMETHASONE DIPROPIONATE\FORMOTEROL
     Dosage: 100/6 MICROGRAMS/DOSE SOLUTION FOR INHALATION IN A PRESSURIZED BOTTLE
     Route: 055
  10. LANSOPRAZOLE. [Concomitant]
     Active Substance: LANSOPRAZOLE
  11. SPIRIVA [Suspect]
     Active Substance: TIOTROPIUM BROMIDE MONOHYDRATE
     Dosage: 18 MICROGRAMS, FORM: POWDER FOR INHALATION IN SOFTGEL
     Route: 055

REACTIONS (1)
  - Acute respiratory failure [Fatal]

NARRATIVE: CASE EVENT DATE: 20150311
